FAERS Safety Report 9123312 (Version 1)
Quarter: 2013Q1

REPORT INFORMATION
  Report Type: Spontaneous
  Country: US (occurrence: US)
  Receive Date: 20130227
  Receipt Date: 20130227
  Transmission Date: 20140127
  Serious: Yes (Other)
  Sender: FDA-Public Use
  Company Number: US-PFIZER INC-2013066782

PATIENT
  Age: 48 Year
  Sex: Male
  Weight: 83.9 kg

DRUGS (1)
  1. BENEFIX [Suspect]
     Indication: FACTOR IX DEFICIENCY
     Dosage: 21 IU/KG THREE TIMES PER WEEK

REACTIONS (3)
  - Haemorrhage [Unknown]
  - Off label use [Unknown]
  - Disease complication [Unknown]
